FAERS Safety Report 18823922 (Version 2)
Quarter: 2022Q1

REPORT INFORMATION
  Report Type: Report from Study
  Country: CA (occurrence: CA)
  Receive Date: 20210202
  Receipt Date: 20220209
  Transmission Date: 20220424
  Serious: Yes (Hospitalization, Other)
  Sender: FDA-Public Use
  Company Number: CA-HLS-202106981

PATIENT
  Age: 55 Year
  Sex: Male

DRUGS (6)
  1. CLOZARIL [Suspect]
     Active Substance: CLOZAPINE
     Indication: Product used for unknown indication
     Dosage: 50 MG IN THE MORNING +450 MG EVERY MORNING
     Route: 048
     Dates: start: 20201022, end: 20210127
  2. DIVALPROEX SODIUM [Concomitant]
     Active Substance: DIVALPROEX SODIUM
     Indication: Product used for unknown indication
     Route: 065
     Dates: end: 20210116
  3. LITHIUM [Concomitant]
     Active Substance: LITHIUM
     Indication: Product used for unknown indication
     Dosage: AT BEDTIME , INCREASED TO 900 MG AT BEDTIME
     Route: 065
  4. VITAMIN C [Concomitant]
     Active Substance: ASCORBIC ACID
     Indication: Product used for unknown indication
     Route: 048
  5. LAMOTRIGINE [Concomitant]
     Active Substance: LAMOTRIGINE
     Indication: Product used for unknown indication
     Dosage: AT BEDTIME
     Route: 048
  6. THIAMINE [Concomitant]
     Active Substance: THIAMINE
     Indication: Product used for unknown indication
     Dosage: 200 MG THREE TIMES DAILY
     Route: 048
     Dates: start: 20210120

REACTIONS (19)
  - Delusion of grandeur [Unknown]
  - Agitation [Unknown]
  - Neutrophil count decreased [Recovered/Resolved]
  - Anaemia [Unknown]
  - Antisocial personality disorder [Unknown]
  - Pneumonia aspiration [Unknown]
  - Intestinal obstruction [Unknown]
  - Choking [Unknown]
  - Delirium [Unknown]
  - Hepatic enzyme increased [Unknown]
  - Platelet count decreased [Unknown]
  - Myoclonus [Unknown]
  - Neuroleptic malignant syndrome [Unknown]
  - Thrombocytopenia [Recovering/Resolving]
  - Schizoaffective disorder bipolar type [Unknown]
  - Tremor [Unknown]
  - Victim of abuse [Unknown]
  - Vomiting [Unknown]
  - Leukopenia [Recovered/Resolved]

NARRATIVE: CASE EVENT DATE: 20201201
